FAERS Safety Report 5261523-9 (Version None)
Quarter: 2007Q1

REPORT INFORMATION
  Report Type: 
  Country: None (occurrence: None)
  Receive Date: 20070307
  Receipt Date: 20070219
  Transmission Date: 20070707
  Serious: Yes (Other)
  Sender: FDA-Public Use
  Company Number: 2007-00307

PATIENT
  Age: 61 Year
  Sex: Female

DRUGS (5)
  1. VELCADE [Suspect]
     Indication: MULTIPLE MYELOMA
     Dosage: 2.10 MG
     Dates: start: 20070202, end: 20070202
  2. DECADRON [Concomitant]
  3. BAKTAR (SULFAMETHOXAZOLE, TRIMETHOPRIM) [Concomitant]
  4. FAMOTIDINE [Concomitant]
  5. FERROMIA (FERROUS CITRATE) [Concomitant]

REACTIONS (10)
  - BLOOD LACTATE DEHYDROGENASE INCREASED [None]
  - FALL [None]
  - GRIP STRENGTH DECREASED [None]
  - HEADACHE [None]
  - HYPERGLYCAEMIA [None]
  - HYPOTENSION [None]
  - IRON DEFICIENCY ANAEMIA [None]
  - PYREXIA [None]
  - RENAL IMPAIRMENT [None]
  - SYNCOPE [None]
